FAERS Safety Report 8177849-5 (Version None)
Quarter: 2012Q1

REPORT INFORMATION
  Report Type: 
  Country: None (occurrence: None)
  Receive Date: 20120301
  Receipt Date: 20120223
  Transmission Date: 20120608
  Serious: Yes (Death, Hospitalization, Other)
  Sender: FDA-Public Use
  Company Number: JP-MERCK-1112USA02425

PATIENT
  Age: 67 Year
  Sex: Male
  Weight: 29 kg

DRUGS (7)
  1. ACTOS [Suspect]
     Indication: DIABETES MELLITUS
     Route: 048
     Dates: start: 20051110, end: 20111201
  2. METFORMIN HCL [Suspect]
     Indication: DIABETES MELLITUS
     Route: 048
     Dates: start: 20050721, end: 20111201
  3. AMARYL [Suspect]
     Indication: DIABETES MELLITUS
     Dosage: DIVIDED DOSE FREQUENCY U
     Route: 048
     Dates: start: 20090326, end: 20111201
  4. HYZAAR [Concomitant]
     Indication: HYPERTENSION
     Route: 048
     Dates: start: 20081127, end: 20111201
  5. ALDACTONE [Concomitant]
     Indication: HYPERTENSION
     Route: 048
     Dates: start: 20081127, end: 20111201
  6. JANUVIA [Suspect]
     Indication: DIABETES MELLITUS
     Route: 048
     Dates: start: 20100218, end: 20111201
  7. ATENOLOL [Concomitant]
     Indication: HYPERTENSION
     Route: 048
     Dates: start: 20081127, end: 20111201

REACTIONS (2)
  - HYPOGLYCAEMIA [None]
  - HEPATIC NEOPLASM MALIGNANT [None]
